FAERS Safety Report 8261989-6 (Version None)
Quarter: 2012Q2

REPORT INFORMATION
  Report Type: 
  Country: None (occurrence: None)
  Receive Date: 20120405
  Receipt Date: 20120330
  Transmission Date: 20120825
  Serious: Yes (Other)
  Sender: FDA-Public Use
  Company Number: US-PFIZER INC-2012082172

PATIENT
  Sex: Female

DRUGS (1)
  1. LYRICA [Suspect]
     Indication: FIBROMYALGIA
     Dosage: 150 MG, 2X/DAY
     Route: 048
     Dates: start: 20111201

REACTIONS (5)
  - UNRESPONSIVE TO STIMULI [None]
  - FALL [None]
  - MALAISE [None]
  - FEELING DRUNK [None]
  - MEMORY IMPAIRMENT [None]
